FAERS Safety Report 9146033 (Version 1)
Quarter: 2013Q1

REPORT INFORMATION
  Report Type: Spontaneous
  Country: US (occurrence: US)
  Receive Date: 20130307
  Receipt Date: 20130307
  Transmission Date: 20140127
  Serious: Yes (Other)
  Sender: FDA-Public Use
  Company Number: US-009507513-1303USA002875

PATIENT
  Age: 59 Year
  Sex: Male

DRUGS (6)
  1. JANUVIA [Suspect]
     Indication: TYPE 2 DIABETES MELLITUS
     Dosage: 100 MG, QD
     Route: 048
     Dates: start: 20081106, end: 20130221
  2. ENALAPRIL MALEATE [Concomitant]
  3. METFORMIN [Concomitant]
  4. ZOCOR [Concomitant]
  5. CRESTOR [Concomitant]
  6. ACTOSE [Concomitant]
     Dosage: UNK
     Dates: end: 20111212

REACTIONS (1)
  - Pancreatitis [Recovering/Resolving]
